FAERS Safety Report 8141374-8 (Version None)
Quarter: 2012Q1

REPORT INFORMATION
  Report Type: 
  Country: None (occurrence: None)
  Receive Date: 20120216
  Receipt Date: 20120209
  Transmission Date: 20120608
  Serious: Yes (Death, Other)
  Sender: FDA-Public Use
  Company Number: PHEH2011US011283

PATIENT
  Sex: Female

DRUGS (12)
  1. COQ10 [Concomitant]
     Dosage: 1 DF, DAILY
  2. FOLTX [Concomitant]
     Dosage: 1 DF, QD
     Route: 048
  3. MAG-OX [Concomitant]
     Dosage: 1 DF, DAILY
  4. CALTRATE PLUS [Concomitant]
     Dosage: 1 DF, BID
  5. PLAVIX [Concomitant]
     Dosage: 75 MG, QD
     Route: 048
  6. PROLIA [Concomitant]
     Route: 058
  7. IRON [Concomitant]
     Dosage: 1 DF, DAILY
  8. TASIGNA [Suspect]
     Indication: CHRONIC MYELOID LEUKAEMIA
     Dosage: 2  DF IN THE MNG AND 1DF IN THE EVENING
     Route: 048
     Dates: start: 20081101
  9. TEKTURNA [Concomitant]
     Dosage: 1 DF, QD
     Route: 048
  10. ASPIRIN [Concomitant]
     Dosage: 1 DF, QD
     Route: 048
  11. LIPITOR [Concomitant]
     Dosage: 1 DF, QD
     Route: 048
  12. MULTI-VITAMINS [Concomitant]
     Dosage: 1 DF, DAILY

REACTIONS (9)
  - SUPRAVENTRICULAR EXTRASYSTOLES [None]
  - HAEMATOCRIT DECREASED [None]
  - ELECTROCARDIOGRAM REPOLARISATION ABNORMALITY [None]
  - HAEMOGLOBIN DECREASED [None]
  - RESPIRATORY TRACT INFECTION [None]
  - LEFT VENTRICULAR HYPERTROPHY [None]
  - DIZZINESS [None]
  - HYPERTENSION [None]
  - BLOOD PRESSURE INCREASED [None]
